FAERS Safety Report 22013081 (Version 1)
Quarter: 2023Q1

REPORT INFORMATION
  Report Type: Spontaneous
  Country: US (occurrence: US)
  Receive Date: 20230220
  Receipt Date: 20230220
  Transmission Date: 20230418
  Serious: No
  Sender: FDA-Public Use
  Company Number: US-BAYER-2023A015526

PATIENT
  Sex: Male

DRUGS (1)
  1. MIRALAX [Suspect]
     Active Substance: POLYETHYLENE GLYCOL 3350
     Indication: Constipation
     Dosage: 6 DAYS CONSECUTIVELY

REACTIONS (3)
  - Therapeutic product effect incomplete [Unknown]
  - Muscle disorder [Unknown]
  - Sciatic nerve neuropathy [Unknown]

NARRATIVE: CASE EVENT DATE: 20230124
